FAERS Safety Report 9369009 (Version 1)
Quarter: 2013Q2

REPORT INFORMATION
  Report Type: Report from Study
  Country: BR (occurrence: BR)
  Receive Date: 20130626
  Receipt Date: 20130626
  Transmission Date: 20140414
  Serious: Yes (Other)
  Sender: FDA-Public Use
  Company Number: PHHY2013BR064706

PATIENT
  Sex: Male
  Weight: 80 kg

DRUGS (1)
  1. FORASEQ [Suspect]
     Indication: EMPHYSEMA
     Dosage: 1 DF, BID
     Dates: start: 2007

REACTIONS (3)
  - Glaucoma [Recovering/Resolving]
  - Cataract [Recovering/Resolving]
  - Eye irritation [Recovering/Resolving]
